FAERS Safety Report 18440464 (Version 2)
Quarter: 2020Q4

REPORT INFORMATION
  Report Type: Spontaneous
  Country: US (occurrence: US)
  Receive Date: 20201029
  Receipt Date: 20201103
  Transmission Date: 20210114
  Serious: No
  Sender: FDA-Public Use
  Company Number: US-GLAXOSMITHKLINE-US2020AMR208206

PATIENT
  Sex: Female

DRUGS (2)
  1. BREO ELLIPTA [Suspect]
     Active Substance: FLUTICASONE FUROATE\VILANTEROL TRIFENATATE
     Indication: PRODUCT USED FOR UNKNOWN INDICATION
     Dosage: UNK
  2. ADVAIR HFA [Suspect]
     Active Substance: FLUTICASONE PROPIONATE\SALMETEROL XINAFOATE
     Indication: PRODUCT USED FOR UNKNOWN INDICATION
     Dosage: UNK

REACTIONS (11)
  - Dysphonia [Recovered/Resolved]
  - Eyelid ptosis [Unknown]
  - Road traffic accident [Unknown]
  - Dry throat [Unknown]
  - Rib fracture [Unknown]
  - Headache [Unknown]
  - Nausea [Unknown]
  - Dental caries [Unknown]
  - Concussion [Unknown]
  - Accident [Unknown]
  - Wrist fracture [Unknown]
